FAERS Safety Report 15426151 (Version 1)
Quarter: 2018Q3

REPORT INFORMATION
  Report Type: Spontaneous
  Country: FR (occurrence: FR)
  Receive Date: 20180925
  Receipt Date: 20180925
  Transmission Date: 20181010
  Serious: Yes (Hospitalization)
  Sender: FDA-Public Use
  Company Number: FR-PURDUE-GBR-2018-0059559

PATIENT
  Age: 93 Year
  Sex: Male
  Weight: 61 kg

DRUGS (5)
  1. OXYCONTIN [Suspect]
     Active Substance: OXYCODONE HYDROCHLORIDE
     Indication: PELVIC FRACTURE
     Dosage: 2 DF, DAILY (STRENGTH 10MG)
     Route: 048
     Dates: start: 20171107, end: 20171114
  2. XARELTO [Concomitant]
     Active Substance: RIVAROXABAN
     Dosage: 1 DF, DAILY
     Route: 048
  3. ALDACTONE [Concomitant]
     Active Substance: SPIRONOLACTONE
     Dosage: 1 DF, DAILY
     Route: 048
  4. LASILIX                            /00032601/ [Concomitant]
     Active Substance: FUROSEMIDE
     Dosage: 1 DF, DAILY
     Route: 048
  5. ACUPAN [Suspect]
     Active Substance: NEFOPAM HYDROCHLORIDE
     Indication: PELVIC FRACTURE
     Dosage: 3 DF. DAILY
     Route: 048
     Dates: start: 20171020, end: 20171114

REACTIONS (2)
  - Minimal hepatic encephalopathy [Recovered/Resolved]
  - Confusional state [Recovered/Resolved]

NARRATIVE: CASE EVENT DATE: 20171114
